FAERS Safety Report 15266807 (Version 1)
Quarter: 2018Q3

REPORT INFORMATION
  Report Type: Spontaneous
  Country: US (occurrence: US)
  Receive Date: 20180810
  Receipt Date: 20180810
  Transmission Date: 20181010
  Serious: No
  Sender: FDA-Public Use
  Company Number: US-TEVA-2018-US-937904

PATIENT
  Age: 58 Year
  Sex: Female

DRUGS (1)
  1. PROPAFENONE HCL [Suspect]
     Active Substance: PROPAFENONE HYDROCHLORIDE
     Indication: ATRIAL FIBRILLATION
     Route: 065
     Dates: start: 2012

REACTIONS (2)
  - Constipation [Not Recovered/Not Resolved]
  - Overgrowth bacterial [Unknown]

NARRATIVE: CASE EVENT DATE: 2012
